FAERS Safety Report 6327571-2 (Version None)
Quarter: 2009Q3

REPORT INFORMATION
  Report Type: 
  Country: None (occurrence: None)
  Receive Date: 20090825
  Receipt Date: 20090818
  Transmission Date: 20100115
  Serious: Yes (Other)
  Sender: FDA-Public Use
  Company Number: US-ELI_LILLY_AND_COMPANY-US200906000458

PATIENT
  Sex: Female

DRUGS (11)
  1. HUMALOG [Suspect]
     Dosage: 30 U, DAILY (1/D)
  2. HUMALOG [Suspect]
  3. LANTUS [Concomitant]
     Dosage: UNK, UNK
  4. ASPIRIN [Concomitant]
     Dosage: 81 MG, DAILY (1/D)
     Route: 048
  5. ATENOLOL [Concomitant]
     Dosage: 100 MG, DAILY (1/D)
     Route: 048
  6. CITALOPRAM HYDROBROMIDE [Concomitant]
     Dosage: 20 MG, DAILY (1/D)
     Route: 048
  7. DIOVAN [Concomitant]
     Dosage: 80 MG, DAILY (1/D)
     Route: 048
  8. ISOSORBIDE MONONITRATE [Concomitant]
     Dosage: 30 MG, DAILY (1/D)
  9. MULTI-VITAMIN [Concomitant]
     Dosage: UNK, UNK
     Route: 048
  10. SIMVASTATIN [Concomitant]
     Dosage: 10 MG, DAILY (1/D)
     Route: 048
  11. ASCORBIC ACID [Concomitant]
     Dosage: 500 MG, DAILY (1/D)
     Route: 048

REACTIONS (5)
  - BLINDNESS [None]
  - BLOOD GLUCOSE INCREASED [None]
  - CARDIAC PACEMAKER INSERTION [None]
  - DRUG INEFFECTIVE [None]
  - MACULAR DEGENERATION [None]
